FAERS Safety Report 5788285-0 (Version None)
Quarter: 2008Q2

REPORT INFORMATION
  Report Type: 
  Country: None (occurrence: None)
  Receive Date: 20080625
  Receipt Date: 20080616
  Transmission Date: 20081010
  Serious: Yes (Other)
  Sender: FDA-Public Use
  Company Number: US-MERCK-0806USA03115

PATIENT
  Age: 40 Year
  Sex: Male

DRUGS (3)
  1. FOSAMAX PLUS D [Suspect]
     Indication: OSTEOPENIA
     Route: 048
     Dates: start: 20080101, end: 20080101
  2. CELEBREX [Concomitant]
     Route: 065
  3. VICODIN [Concomitant]
     Route: 065

REACTIONS (2)
  - DIARRHOEA [None]
  - OSTEONECROSIS [None]
